FAERS Safety Report 9337542 (Version 1)
Quarter: 2013Q2

REPORT INFORMATION
  Report Type: Spontaneous
  Country: US (occurrence: US)
  Receive Date: 20130607
  Receipt Date: 20130607
  Transmission Date: 20140414
  Serious: Yes (Hospitalization)
  Sender: FDA-Public Use
  Company Number: US-CELGENEUS-163-POMAL-13054582

PATIENT
  Age: 60 Year
  Sex: Female

DRUGS (2)
  1. POMALYST [Suspect]
     Indication: PLASMA CELL MYELOMA
     Dosage: 4 MILLIGRAM
     Route: 048
  2. POMALYST [Suspect]
     Dosage: 2 MILLIGRAM
     Route: 048

REACTIONS (3)
  - Pulmonary alveolar haemorrhage [Recovering/Resolving]
  - Pancytopenia [Unknown]
  - Pyrexia [Unknown]
